FAERS Safety Report 13435672 (Version 1)
Quarter: 2017Q2

REPORT INFORMATION
  Report Type: Spontaneous
  Country: US (occurrence: US)
  Receive Date: 20170412
  Receipt Date: 20170412
  Transmission Date: 20170830
  Serious: Yes (Other)
  Sender: FDA-Public Use
  Company Number: None

PATIENT
  Age: 46 Year
  Sex: Female
  Weight: 71.14 kg

DRUGS (8)
  1. FLUTICASONE-SALMETEROL DISK [Concomitant]
     Active Substance: FLUTICASONE PROPIONATE\SALMETEROL XINAFOATE
  2. LORAZEPAM (ATIVAN) [Concomitant]
  3. PEMBROLIZUMAB. [Suspect]
     Active Substance: PEMBROLIZUMAB
     Indication: COLITIS
     Dosage: ?          OTHER FREQUENCY:Q 3 WEEKS;?
     Route: 042
     Dates: start: 20161221, end: 20170412
  4. ZOLPIDEM [Concomitant]
     Active Substance: ZOLPIDEM\ZOLPIDEM TARTRATE
  5. PEMBROLIZUMAB. [Suspect]
     Active Substance: PEMBROLIZUMAB
     Indication: DIARRHOEA
     Dosage: ?          OTHER FREQUENCY:Q 3 WEEKS;?
     Route: 042
     Dates: start: 20161221, end: 20170412
  6. VERAPAMIL ER [Concomitant]
     Active Substance: VERAPAMIL HYDROCHLORIDE
  7. METOPROLOL TARTRATE (LOPRESSOR) [Concomitant]
  8. XARELTO [Concomitant]
     Active Substance: RIVAROXABAN

REACTIONS (1)
  - Diarrhoea [None]

NARRATIVE: CASE EVENT DATE: 20170326
